FAERS Safety Report 19724893 (Version 1)
Quarter: 2021Q3

REPORT INFORMATION
  Report Type: Spontaneous
  Country: CN (occurrence: CN)
  Receive Date: 20210820
  Receipt Date: 20210820
  Transmission Date: 20211014
  Serious: Yes (Hospitalization)
  Sender: FDA-Public Use
  Company Number: CN-STRIDES ARCOLAB LIMITED-2021SP026610

PATIENT
  Age: 32 Year
  Sex: Male

DRUGS (6)
  1. CEFAMANDOLE NAFATE [Suspect]
     Active Substance: CEFAMANDOLE NAFATE
     Indication: INFECTION
     Dosage: 2 GRAM, EVERY 12 HRS
     Route: 042
     Dates: start: 20181221, end: 20190110
  2. CELECOXIB. [Suspect]
     Active Substance: CELECOXIB
     Indication: ARTHRALGIA
     Dosage: 200 MILLIGRAM, BID
     Route: 048
     Dates: start: 20181221, end: 20190110
  3. CELECOXIB. [Suspect]
     Active Substance: CELECOXIB
     Dosage: 200 MILLIGRAM, BID, ON 13?JAN?2019, DISCONTINUED ON 14 JAN 2019
     Route: 048
  4. TRAMADOL HYDROCHLORIDE. [Suspect]
     Active Substance: TRAMADOL HYDROCHLORIDE
     Indication: ARTHRALGIA
     Dosage: 100 MILLIGRAM, BID
     Route: 048
     Dates: start: 20181221, end: 20190110
  5. CALCITRIOL. [Suspect]
     Active Substance: CALCITRIOL
     Indication: MINERAL SUPPLEMENTATION
     Dosage: 0.5 MICROGRAM, BID
     Route: 048
     Dates: start: 20181221, end: 201901
  6. AESCULUS HIPPOCASTANUM [Concomitant]
     Active Substance: HORSE CHESTNUT
     Indication: SWELLING
     Dosage: UNK
     Route: 065
     Dates: start: 20181227, end: 201901

REACTIONS (1)
  - Pyrexia [Recovered/Resolved]

NARRATIVE: CASE EVENT DATE: 20190106
